FAERS Safety Report 8894918 (Version 1)
Quarter: 2012Q4

REPORT INFORMATION
  Report Type: 
  Country: US (occurrence: US)
  Receive Date: 20121107
  Receipt Date: 20121107
  Transmission Date: 20130627
  Serious: No
  Sender: FDA-Public Use
  Company Number: US-AMGEN-USASP2011049780

PATIENT
  Sex: Female

DRUGS (8)
  1. ENBREL [Suspect]
     Indication: HEPATIC ENZYME INCREASED
     Dosage: 50 mg, qwk
  2. OMEPRAZOLE [Concomitant]
  3. METHOTREXATE [Concomitant]
  4. FOLIC ACID [Concomitant]
  5. MOTRIN [Concomitant]
  6. ALBUTEROL                          /00139501/ [Concomitant]
  7. CITALOPRAM [Concomitant]
  8. ENALAPRIL [Concomitant]

REACTIONS (1)
  - Hepatic enzyme increased [Unknown]
